FAERS Safety Report 4319026-1 (Version None)
Quarter: 2004Q1

REPORT INFORMATION
  Report Type: 
  Country: None (occurrence: None)
  Receive Date: 20040315
  Receipt Date: 20040305
  Transmission Date: 20041129
  Serious: Yes (Hospitalization)
  Sender: FDA-Public Use
  Company Number: 2004015821

PATIENT
  Age: 31 Year
  Sex: Female

DRUGS (3)
  1. FELDENE [Suspect]
     Indication: RHEUMATOID ARTHRITIS
     Dosage: 20 MG (DAILY), RECTAL
     Route: 054
     Dates: start: 20040206, end: 20040101
  2. METHOTREXATE SODIUM [Suspect]
     Indication: RHEUMATOID ARTHRITIS
     Dosage: 2 MG (DAILY), ORAL
     Route: 048
     Dates: start: 20021201
  3. PREDNISOLONE [Suspect]
     Indication: RHEUMATOID ARTHRITIS
     Dosage: 7.5 MG (DAILY), ORAL
     Route: 048
     Dates: start: 20010101

REACTIONS (1)
  - LIVER DISORDER [None]
